FAERS Safety Report 5467402-6 (Version None)
Quarter: 2007Q3

REPORT INFORMATION
  Report Type: 
  Country: None (occurrence: None)
  Receive Date: 20070925
  Receipt Date: 20070914
  Transmission Date: 20080115
  Serious: Yes (Hospitalization)
  Sender: FDA-Public Use
  Company Number: HQWYE198102NOV04

PATIENT
  Sex: Male
  Weight: 69 kg

DRUGS (6)
  1. SIROLIMUS [Suspect]
     Indication: PROPHYLAXIS AGAINST TRANSPLANT REJECTION
     Dosage: 2MG
     Route: 048
     Dates: start: 20040920
  2. SIROLIMUS [Suspect]
     Dates: start: 20041013
  3. METOPROLOL SUCCINATE [Concomitant]
     Indication: HYPERTENSION
     Dates: start: 20040311
  4. MYCOPHENOLATE MOFETIL [Concomitant]
     Indication: IMMUNOSUPPRESSION
     Dates: start: 20040807, end: 20041002
  5. MYCOPHENOLATE MOFETIL [Concomitant]
     Dates: start: 20041003
  6. URSODIOL [Concomitant]
     Indication: BILE OUTPUT ABNORMAL
     Dates: start: 20040203

REACTIONS (2)
  - HEPATITIS C VIRUS [None]
  - LIVER TRANSPLANT REJECTION [None]
